FAERS Safety Report 5521837-1 (Version None)
Quarter: 2007Q4

REPORT INFORMATION
  Report Type: 
  Country: None (occurrence: None)
  Receive Date: 20071120
  Receipt Date: 20071112
  Transmission Date: 20080405
  Serious: Yes (Other)
  Sender: FDA-Public Use
  Company Number: US-ROCHE-459009

PATIENT
  Age: 21 Year
  Sex: Female
  Weight: 68 kg

DRUGS (4)
  1. ACCUTANE [Suspect]
     Indication: ACNE
     Dosage: DOSAGE BEGAN WITH A DAILY DOSE OF 40 MG, INCREASED TO 80 MG ALTERNATING WITH 40 MG, THEN PROGRESSED+
     Route: 048
     Dates: start: 19981008, end: 19990209
  2. ACCUTANE [Suspect]
     Dosage: DOSAGES RANGED FROM 40 MG DAILY, THEN 80 MG DAILY ALTERNATING WITH 40 MG DAILY, 60 MG DAILY, AND AL+
     Route: 048
     Dates: start: 19970102, end: 19970522
  3. TYLENOL [Concomitant]
  4. ADVIL LIQUI-GELS [Concomitant]

REACTIONS (4)
  - DEPRESSION [None]
  - IRRITABLE BOWEL SYNDROME [None]
  - PANIC ATTACK [None]
  - TYPE 1 DIABETES MELLITUS [None]
